FAERS Safety Report 10058091 (Version 3)
Quarter: 2014Q2

REPORT INFORMATION
  Report Type: Spontaneous
  Country: US (occurrence: US)
  Receive Date: 20140404
  Receipt Date: 20140515
  Transmission Date: 20141212
  Serious: No
  Sender: FDA-Public Use
  Company Number: US-PFIZER INC-2014091375

PATIENT
  Age: 33 Year
  Sex: Male
  Weight: 74.83 kg

DRUGS (7)
  1. LYRICA [Suspect]
     Indication: ARTHRALGIA
     Dosage: 150 MG, 2X/DAY
     Dates: start: 2013, end: 201405
  2. LYRICA [Suspect]
     Indication: MUSCULOSKELETAL PAIN
  3. LYRICA [Suspect]
     Indication: BACK DISORDER
  4. LYRICA [Suspect]
     Indication: MUSCULOSKELETAL DISCOMFORT
  5. LYRICA [Suspect]
     Indication: FIBROMYALGIA
  6. HUMIRA [Concomitant]
     Indication: CROHN^S DISEASE
     Dosage: 40 MG, EVERY TWO WEEKS
  7. KLONOPIN [Concomitant]
     Indication: CROHN^S DISEASE
     Dosage: 1 MG, 2X/DAY

REACTIONS (8)
  - Drug withdrawal syndrome [Not Recovered/Not Resolved]
  - Pain [Not Recovered/Not Resolved]
  - Insomnia [Not Recovered/Not Resolved]
  - Hyperhidrosis [Not Recovered/Not Resolved]
  - Musculoskeletal pain [Not Recovered/Not Resolved]
  - Chills [Not Recovered/Not Resolved]
  - Tremor [Not Recovered/Not Resolved]
  - Diarrhoea [Not Recovered/Not Resolved]
